FAERS Safety Report 7503329-3 (Version None)
Quarter: 2011Q2

REPORT INFORMATION
  Report Type: 
  Country: None (occurrence: None)
  Receive Date: 20110525
  Receipt Date: 20110516
  Transmission Date: 20111010
  Serious: Yes (Hospitalization)
  Sender: FDA-Public Use
  Company Number: US-ASTRAZENECA-2011SE30333

PATIENT
  Age: 63 Year
  Sex: Female
  Weight: 101.2 kg

DRUGS (3)
  1. PLAVIX [Concomitant]
  2. CRESTOR [Suspect]
     Route: 048
  3. DIABETIC MED [Concomitant]

REACTIONS (1)
  - ANGINA PECTORIS [None]
